FAERS Safety Report 7603033-7 (Version None)
Quarter: 2011Q3

REPORT INFORMATION
  Report Type: 
  Country: None (occurrence: None)
  Receive Date: 20110712
  Receipt Date: 20110712
  Transmission Date: 20111222
  Serious: No
  Sender: FDA-Public Use
  Company Number: None

PATIENT
  Age: 73 Year
  Sex: Female
  Weight: 68.038 kg

DRUGS (1)
  1. NORFLEX [Suspect]
     Indication: MUSCLE STRAIN
     Dosage: 100 MGS
     Route: 048
     Dates: start: 20110707, end: 20110710

REACTIONS (5)
  - INSOMNIA [None]
  - URINARY RETENTION [None]
  - SOMNOLENCE [None]
  - DRY MOUTH [None]
  - BREATH ODOUR [None]
